FAERS Safety Report 24623311 (Version 1)
Quarter: 2024Q4

REPORT INFORMATION
  Report Type: Spontaneous
  Country: US (occurrence: US)
  Receive Date: 20241115
  Receipt Date: 20241115
  Transmission Date: 20250115
  Serious: Yes (Other)
  Sender: ABBVIE
  Company Number: US-ABBVIE-5999704

PATIENT
  Sex: Male
  Weight: 81.6 kg

DRUGS (2)
  1. HUMIRA [Suspect]
     Active Substance: ADALIMUMAB
     Indication: Rheumatoid arthritis
     Route: 058
  2. DUPIXENT [Suspect]
     Active Substance: DUPILUMAB
     Indication: Asthma
     Dosage: STRENGTH- 150 MG/ML
     Route: 058

REACTIONS (4)
  - Mobility decreased [Unknown]
  - Rheumatoid arthritis [Unknown]
  - Gait inability [Unknown]
  - Peripheral swelling [Unknown]
